FAERS Safety Report 4647972-8 (Version None)
Quarter: 2005Q2

REPORT INFORMATION
  Report Type: 
  Country: None (occurrence: None)
  Receive Date: 20050331
  Receipt Date: 20041221
  Transmission Date: 20051028
  Serious: No
  Sender: FDA-Public Use
  Company Number: 04P-163-0284317-00

PATIENT
  Sex: Female

DRUGS (8)
  1. HUMIRA [Suspect]
     Indication: RHEUMATOID ARTHRITIS
     Dosage: 40 MG, 1 IN 2 WK, SUBCUTANEOUS
     Route: 058
  2. PREDNISONE TAB [Concomitant]
  3. PRIMIDONE [Concomitant]
  4. TOPIRAMATE [Concomitant]
  5. LEFLUNOMIDE [Concomitant]
  6. CLINAZEPAM [Concomitant]
  7. HYDROCODONE BITARTRATE [Concomitant]
  8. MULTI-VITAMINS [Concomitant]

REACTIONS (2)
  - INJECTION SITE HAEMORRHAGE [None]
  - INJECTION SITE IRRITATION [None]
